FAERS Safety Report 18592545 (Version 1)
Quarter: 2020Q4

REPORT INFORMATION
  Report Type: Spontaneous
  Country: FR (occurrence: FR)
  Receive Date: 20201208
  Receipt Date: 20201208
  Transmission Date: 20210114
  Serious: Yes (Hospitalization)
  Sender: FDA-Public Use
  Company Number: FR-PFIZER INC-2020477846

PATIENT
  Age: 70 Year
  Sex: Female
  Weight: 74 kg

DRUGS (1)
  1. CARBOPLATINE HOSPIRA [Suspect]
     Active Substance: CARBOPLATIN
     Indication: OVARIAN NEOPLASM
     Dosage: 1 DF, SINGLE
     Route: 042
     Dates: start: 20201028, end: 20201028

REACTIONS (4)
  - Formication [Recovered/Resolved]
  - Skin reaction [Recovered/Resolved]
  - Infusion related reaction [Recovered/Resolved]
  - Pruritus [Recovered/Resolved]

NARRATIVE: CASE EVENT DATE: 20201028
